FAERS Safety Report 9275841 (Version 2)
Quarter: 2013Q2

REPORT INFORMATION
  Report Type: Report from Study
  Country: CL (occurrence: CL)
  Receive Date: 20130507
  Receipt Date: 20130607
  Transmission Date: 20140414
  Serious: Yes (Other)
  Sender: FDA-Public Use
  Company Number: CL-PFIZER INC-2013131411

PATIENT
  Age: 46 Year
  Sex: Male
  Weight: 84 kg

DRUGS (3)
  1. TOFACITINIB CITRATE [Suspect]
     Indication: PSORIASIS
     Dosage: 10 MG, 2X/DAY
     Route: 048
     Dates: start: 20120403, end: 20120702
  2. TOFACITINIB CITRATE [Suspect]
     Dosage: 5 MG, 2X/DAY
     Route: 048
     Dates: start: 20120703, end: 20120924
  3. TOFACITINIB CITRATE [Suspect]
     Dosage: 10 MG, 2X/DAY
     Route: 048
     Dates: start: 20120925, end: 20130318

REACTIONS (1)
  - Epididymitis [Recovered/Resolved]
